FAERS Safety Report 18697081 (Version 1)
Quarter: 2021Q1

REPORT INFORMATION
  Report Type: Spontaneous
  Country: US (occurrence: US)
  Receive Date: 20210104
  Receipt Date: 20210104
  Transmission Date: 20210419
  Serious: Yes (Hospitalization)
  Sender: FDA-Public Use
  Company Number: US-009507513-2012USA013081

PATIENT
  Age: 78 Year
  Sex: Female

DRUGS (1)
  1. PROVENTIL [Suspect]
     Active Substance: ALBUTEROL
     Indication: ASTHMA
     Route: 055

REACTIONS (6)
  - Drug dose omission by device [Unknown]
  - Device malfunction [Unknown]
  - Knee arthroplasty [Recovered/Resolved]
  - Cough [Recovered/Resolved]
  - Vomiting [Recovered/Resolved]
  - Poor quality device used [Unknown]

NARRATIVE: CASE EVENT DATE: 20201223
